FAERS Safety Report 11988731 (Version 1)
Quarter: 2016Q1

REPORT INFORMATION
  Report Type: Spontaneous
  Country: IN (occurrence: IN)
  Receive Date: 20160202
  Receipt Date: 20160202
  Transmission Date: 20160526
  Serious: Yes (Other)
  Sender: FDA-Public Use
  Company Number: IN-PFIZER INC-2016049756

PATIENT
  Age: 25 Year
  Sex: Male

DRUGS (3)
  1. LORAZEPAM. [Concomitant]
     Active Substance: LORAZEPAM
     Indication: AGGRESSION
     Dosage: UNK, (UP TO 6 MG IN DIVIDED DOSES), GRADUALLY TAPERED OFF
     Route: 048
  2. PHENYTOIN. [Suspect]
     Active Substance: PHENYTOIN
     Indication: GENERALISED TONIC-CLONIC SEIZURE
     Dosage: 200 MG, DAILY
     Route: 048
  3. PHENYTOIN. [Suspect]
     Active Substance: PHENYTOIN
     Dosage: 300 MG, DAILY
     Route: 048

REACTIONS (5)
  - Tremor [Recovered/Resolved]
  - Gait disturbance [Recovered/Resolved]
  - Neurotoxicity [Recovered/Resolved]
  - Psychotic disorder [Recovered/Resolved]
  - Disease progression [Recovered/Resolved]
